FAERS Safety Report 15688946 (Version 2)
Quarter: 2019Q1

REPORT INFORMATION
  Report Type: Spontaneous
  Country: US (occurrence: US)
  Receive Date: 20181205
  Receipt Date: 20190122
  Transmission Date: 20190417
  Serious: No
  Sender: FDA-Public Use
  Company Number: US-ASTRAZENECA-2018SF50768

PATIENT
  Sex: Female

DRUGS (2)
  1. TAGRISSO [Suspect]
     Active Substance: OSIMERTINIB
     Indication: EGFR GENE MUTATION
     Route: 048
     Dates: start: 20171124
  2. TAGRISSO [Suspect]
     Active Substance: OSIMERTINIB
     Indication: NON-SMALL CELL LUNG CANCER STAGE IV
     Route: 048
     Dates: start: 20171124

REACTIONS (10)
  - Blood creatinine increased [Unknown]
  - Pain [Unknown]
  - Onychoclasis [Unknown]
  - Abdominal discomfort [Unknown]
  - Acne [Not Recovered/Not Resolved]
  - Memory impairment [Not Recovered/Not Resolved]
  - Skin disorder [Recovered/Resolved]
  - Madarosis [Recovering/Resolving]
  - Onychalgia [Unknown]
  - Rash [Recovered/Resolved]
